FAERS Safety Report 9956519 (Version 2)
Quarter: 2014Q1

REPORT INFORMATION
  Report Type: Report from Study
  Country: US (occurrence: US)
  Receive Date: 20140304
  Receipt Date: 20140304
  Transmission Date: 20141002
  Serious: No
  Sender: FDA-Public Use
  Company Number: US-ABBVIE-13P-163-1086800-00

PATIENT
  Age: 64 Year
  Sex: Female

DRUGS (10)
  1. HUMIRA [Suspect]
     Indication: CROHN^S DISEASE
     Dates: start: 20130325, end: 20130422
  2. HUMIRA [Suspect]
     Indication: COLITIS ULCERATIVE
  3. ATENOLOL [Concomitant]
     Indication: HEART RATE IRREGULAR
  4. ASACOL HD [Concomitant]
     Indication: INFLAMMATION
  5. ALPRAZOLAM [Concomitant]
     Indication: TENSION
  6. IRON SUPPLEMENT [Concomitant]
  7. B-12 [Concomitant]
     Indication: ANAEMIA
  8. RUTIN [Concomitant]
     Indication: HAEMORRHOIDS
  9. VITAMIN D-3 [Concomitant]
     Indication: PRODUCT USED FOR UNKNOWN INDICATION
  10. FOLIC ACID [Concomitant]
     Indication: VITAMIN SUPPLEMENTATION

REACTIONS (7)
  - Throat irritation [Not Recovered/Not Resolved]
  - Sinusitis [Not Recovered/Not Resolved]
  - Tooth infection [Not Recovered/Not Resolved]
  - Cough [Not Recovered/Not Resolved]
  - Pneumonia [Unknown]
  - Oedema peripheral [Unknown]
  - Infection [Unknown]
